FAERS Safety Report 9159933 (Version 1)
Quarter: 2013Q1

REPORT INFORMATION
  Report Type: Spontaneous
  Country: JP (occurrence: None)
  Receive Date: 20130219
  Receipt Date: 20130219
  Transmission Date: 20140127
  Serious: Yes (Other)
  Sender: FDA-Public Use
  Company Number: 2013P1002019

PATIENT
  Age: 74 Year
  Sex: Female
  Weight: 50 kg

DRUGS (4)
  1. DIGOXIN [Suspect]
     Indication: ATRIAL FIBRILLATION
  2. EPLERENONE [Suspect]
     Indication: CARDIAC FAILURE
  3. FRUSEMIDE (FUROSEMIDE) [Concomitant]
  4. INSULIN [Concomitant]

REACTIONS (14)
  - Nausea [None]
  - Decreased appetite [None]
  - Syncope [None]
  - Vomiting [None]
  - Pulse pressure decreased [None]
  - Heart rate irregular [None]
  - Blood pressure immeasurable [None]
  - Ventricular tachycardia [None]
  - Accelerated idioventricular rhythm [None]
  - Tachycardia [None]
  - Hyperkalaemia [None]
  - Hypoaldosteronism [None]
  - Left ventricular hypertrophy [None]
  - Hypertrophic cardiomyopathy [None]
